FAERS Safety Report 4888437-8 (Version None)
Quarter: 2006Q1

REPORT INFORMATION
  Report Type: 
  Country: None (occurrence: None)
  Receive Date: 20060119
  Receipt Date: 20060105
  Transmission Date: 20060701
  Serious: Yes (Other)
  Sender: FDA-Public Use
  Company Number: CIP06000025

PATIENT
  Age: 57 Year
  Sex: Female

DRUGS (2)
  1. ACTONEL [Suspect]
     Indication: OSTEOPOROSIS
     Dosage: 35 MG, ONCE WEEKLY, ORAL
     Route: 048
     Dates: start: 20040101, end: 20060101
  2. LISINOPRIL [Concomitant]

REACTIONS (5)
  - BONE EROSION [None]
  - BONE GRAFT [None]
  - JAW DISORDER [None]
  - PAIN IN JAW [None]
  - TOOTH LOSS [None]
